FAERS Safety Report 5268387-8 (Version None)
Quarter: 2007Q1

REPORT INFORMATION
  Report Type: 
  Country: None (occurrence: None)
  Receive Date: 20070313
  Receipt Date: 20070227
  Transmission Date: 20070707
  Serious: Yes (Hospitalization, Disabling, Other)
  Sender: FDA-Public Use
  Company Number: 0104-3013

PATIENT
  Age: 76 Year
  Sex: Male
  Weight: 63.5036 kg

DRUGS (6)
  1. ADVICOR [Suspect]
     Indication: BLOOD CHOLESTEROL INCREASED
     Dosage: 1 TABLET (S) QHS PO
     Route: 048
     Dates: start: 20040101, end: 20050206
  2. ALLOPURINOL [Concomitant]
  3. AVAPRO [Concomitant]
  4. ASPIRIN [Concomitant]
  5. COREG [Concomitant]
  6. ALTACE [Concomitant]

REACTIONS (11)
  - ECCHYMOSIS [None]
  - ERYTHEMA [None]
  - EXTRADURAL HAEMATOMA [None]
  - HAEMORRHAGE [None]
  - MUSCLE INJURY [None]
  - MUSCLE SPASMS [None]
  - NERVE INJURY [None]
  - PARAPARESIS [None]
  - PARAPLEGIA [None]
  - SPINAL COLUMN STENOSIS [None]
  - SPINAL CORD DISORDER [None]
